FAERS Safety Report 16855117 (Version 1)
Quarter: 2019Q3

REPORT INFORMATION
  Report Type: Spontaneous
  Country: US (occurrence: US)
  Receive Date: 20190926
  Receipt Date: 20190926
  Transmission Date: 20191005
  Serious: Yes (Hospitalization, Other)
  Sender: FDA-Public Use
  Company Number: US-GLENMARK PHARMACEUTICALS-2019GMK043262

PATIENT
  Sex: Male

DRUGS (1)
  1. TRIAMCINOLONE ACETONIDE. [Suspect]
     Active Substance: TRIAMCINOLONE ACETONIDE
     Indication: KELOID SCAR
     Dosage: UNK (MULTIPLE ROUNDS OF INTRALESIONAL TRIAMCINOLONE ACETONIDE)
     Route: 026

REACTIONS (2)
  - Drug ineffective [Unknown]
  - Blood glucose increased [Unknown]
